FAERS Safety Report 9477335 (Version 1)
Quarter: 2013Q3

REPORT INFORMATION
  Report Type: Spontaneous
  Country: FR (occurrence: FR)
  Receive Date: 20130826
  Receipt Date: 20130826
  Transmission Date: 20140515
  Serious: Yes (Hospitalization, Other)
  Sender: FDA-Public Use
  Company Number: FR-ROCHE-1265482

PATIENT
  Sex: Male

DRUGS (17)
  1. LEXOMIL [Suspect]
     Indication: PRODUCT USED FOR UNKNOWN INDICATION
     Route: 065
     Dates: start: 2005, end: 2006
  2. RIVOTRIL [Suspect]
     Indication: PRODUCT USED FOR UNKNOWN INDICATION
     Route: 065
     Dates: start: 20090616
  3. DI-ANTALVIC [Suspect]
     Indication: PRODUCT USED FOR UNKNOWN INDICATION
     Route: 065
     Dates: start: 2005, end: 2006
  4. DI-ANTALVIC [Suspect]
     Route: 065
     Dates: start: 20070411
  5. VASTAREL [Suspect]
     Indication: PRODUCT USED FOR UNKNOWN INDICATION
     Route: 065
     Dates: start: 2005, end: 2006
  6. TETRAZEPAM [Suspect]
     Indication: PRODUCT USED FOR UNKNOWN INDICATION
     Route: 065
     Dates: start: 20070411
  7. LYRICA [Suspect]
     Indication: PRODUCT USED FOR UNKNOWN INDICATION
     Route: 065
     Dates: start: 20091119
  8. LYRICA [Suspect]
     Route: 065
     Dates: start: 20100512
  9. VOLTARENE (FRANCE) [Concomitant]
     Route: 065
     Dates: start: 20070411
  10. NAPROSYNE [Concomitant]
     Route: 065
     Dates: start: 2005, end: 2006
  11. SOLUPRED (FRANCE) [Concomitant]
     Route: 065
     Dates: start: 2005, end: 2006
  12. MUCOLATOR [Concomitant]
     Route: 065
     Dates: start: 2005, end: 2006
  13. SOUFRANE [Concomitant]
     Route: 065
     Dates: start: 2005, end: 2006
  14. MEPRONIZINE [Concomitant]
     Route: 065
     Dates: start: 2005, end: 2006
  15. ATURGYL [Concomitant]
     Route: 065
     Dates: start: 2005, end: 2006
  16. BIOSTIM [Concomitant]
     Route: 065
     Dates: start: 2005, end: 2006
  17. AMLOR [Concomitant]
     Route: 065
     Dates: start: 20090616

REACTIONS (11)
  - Sleep apnoea syndrome [Unknown]
  - Headache [Unknown]
  - Asthenia [Unknown]
  - Irritability [Unknown]
  - Altered state of consciousness [Unknown]
  - Hypersensitivity [Unknown]
  - Loss of consciousness [Unknown]
  - Gastritis [Unknown]
  - Somnolence [Unknown]
  - Visual acuity reduced [Unknown]
  - Polyneuropathy [Not Recovered/Not Resolved]
